FAERS Safety Report 8042876-5 (Version None)
Quarter: 2012Q1

REPORT INFORMATION
  Report Type: 
  Country: None (occurrence: None)
  Receive Date: 20120112
  Receipt Date: 20120103
  Transmission Date: 20120608
  Serious: Yes (Hospitalization)
  Sender: FDA-Public Use
  Company Number: FR-JNJFOC-20110500922

PATIENT
  Age: 53 Year
  Sex: Male

DRUGS (6)
  1. MIOREL [Concomitant]
     Indication: PRODUCT USED FOR UNKNOWN INDICATION
     Route: 065
     Dates: start: 20110417, end: 20110418
  2. ACETAMINOPHEN AND TRAMADOL HCL [Suspect]
     Indication: MUSCLE RUPTURE
     Route: 048
     Dates: start: 20110418, end: 20110419
  3. KETOPROFEN [Concomitant]
     Indication: PRODUCT USED FOR UNKNOWN INDICATION
     Route: 065
     Dates: start: 20110418, end: 20110418
  4. ENALAPRIL MALEATE [Concomitant]
     Indication: PRODUCT USED FOR UNKNOWN INDICATION
     Route: 065
     Dates: start: 20100331
  5. ACETAMINOPHEN AND TRAMADOL HCL [Suspect]
     Route: 048
     Dates: start: 20110417, end: 20110417
  6. VOLTAREN [Concomitant]
     Indication: PRODUCT USED FOR UNKNOWN INDICATION
     Route: 065
     Dates: start: 20110417, end: 20110418

REACTIONS (14)
  - VISUAL IMPAIRMENT [None]
  - DRY MOUTH [None]
  - NAUSEA [None]
  - SOMNOLENCE [None]
  - BLOOD PRESSURE INCREASED [None]
  - SPEECH DISORDER [None]
  - DIZZINESS [None]
  - MUSCLE CONTRACTIONS INVOLUNTARY [None]
  - ARRHYTHMIA [None]
  - HEADACHE [None]
  - TRANSIENT ISCHAEMIC ATTACK [None]
  - HYPERTENSION [None]
  - TREMOR [None]
  - CONFUSIONAL STATE [None]
